FAERS Safety Report 5626470-9 (Version None)
Quarter: 2008Q1

REPORT INFORMATION
  Report Type: 
  Country: None (occurrence: None)
  Receive Date: 20080214
  Receipt Date: 20080201
  Transmission Date: 20080703
  Serious: Yes (Other)
  Sender: FDA-Public Use
  Company Number: US-ELI_LILLY_AND_COMPANY-US200801000848

PATIENT
  Sex: Female
  Weight: 57.596 kg

DRUGS (2)
  1. FORTEO [Suspect]
     Indication: OSTEOPOROSIS
     Dosage: 20 UG, DAILY (1/D)
     Dates: start: 20070621, end: 20070801
  2. FORTEO [Suspect]
     Dosage: UNK, UNK
     Dates: start: 20071201

REACTIONS (1)
  - BREAST CANCER [None]
